FAERS Safety Report 4615779-3 (Version None)
Quarter: 2005Q1

REPORT INFORMATION
  Report Type: 
  Country: None (occurrence: None)
  Receive Date: 20050317
  Receipt Date: 20050302
  Transmission Date: 20050727
  Serious: Yes (Death)
  Sender: FDA-Public Use
  Company Number: 2005S1000948

PATIENT
  Age: 66 Year
  Sex: Female

DRUGS (10)
  1. CLOZAPINE [Suspect]
     Indication: SCHIZOPHRENIA
     Dosage: 150 MG; BID; PO
     Route: 048
     Dates: start: 20000101, end: 20050204
  2. PARACETAMOL [Concomitant]
  3. ALBUTEROL [Concomitant]
  4. FLUTICASONE PROPIONATE [Concomitant]
  5. POTASSIUM CHLORIDE [Concomitant]
  6. LEVOTHYROXINE SODIUM [Concomitant]
  7. VITAMIN NOS [Concomitant]
  8. HALOPERIDOL [Concomitant]
  9. LORAZEPAM [Concomitant]
  10. METFORMIN [Concomitant]

REACTIONS (1)
  - INFLUENZA [None]
